FAERS Safety Report 11945714 (Version 2)
Quarter: 2016Q1

REPORT INFORMATION
  Report Type: Report from Study
  Country: US (occurrence: US)
  Receive Date: 20160125
  Receipt Date: 20160125
  Transmission Date: 20160526
  Serious: Yes (Life-Threatening, Hospitalization)
  Sender: FDA-Public Use
  Company Number: US-JNJFOC-20160109151

PATIENT
  Age: 29 Year
  Sex: Male
  Weight: 131 kg

DRUGS (2)
  1. APAP [Suspect]
     Active Substance: ACETAMINOPHEN
     Indication: INFLUENZA LIKE ILLNESS
     Route: 065
  2. COUGH SYRUP [Suspect]
     Active Substance: DEXTROMETHORPHAN HYDROBROMIDE\GUAIFENESIN
     Indication: INFLUENZA LIKE ILLNESS
     Route: 065

REACTIONS (7)
  - Depression [Unknown]
  - Blood bilirubin increased [Unknown]
  - Prothrombin time prolonged [Unknown]
  - Renal tubular necrosis [Unknown]
  - Suicide attempt [Unknown]
  - Transaminases increased [Unknown]
  - Toxicity to various agents [Unknown]

NARRATIVE: CASE EVENT DATE: 20151224
